FAERS Safety Report 19581841 (Version 1)
Quarter: 2021Q3

REPORT INFORMATION
  Report Type: Spontaneous
  Country: NL (occurrence: NL)
  Receive Date: 20210720
  Receipt Date: 20210720
  Transmission Date: 20211014
  Serious: Yes (Hospitalization)
  Sender: FDA-Public Use
  Company Number: NL-TEVA-2021-NL-1933101

PATIENT
  Age: 72 Year
  Sex: Male
  Weight: 75 kg

DRUGS (7)
  1. SIMVASTATINE ? NON?CURRENT DRUG / BRAND NAME NOT SPECIFIED [Concomitant]
     Dosage: 1 MILLIGRAM DAILY; THERAPY START AND END DATE: ASKU
  2. OMEPRAZOL / BRAND NAME NOT SPECIFIED [Concomitant]
     Active Substance: OMEPRAZOLE
     Dosage: 20 MILLIGRAM DAILY; THERAPY START AND END DATE: ASKU
  3. MESALAZINE TABLET MGA 1G / PENTASA TABLET MVA 1G [Concomitant]
     Dosage: 4 GRAM DAILY; THERAPY START AND END DATE: ASKU
  4. CARBASALAATCALCIUM POEDER 100MG / BRAND NAME NOT SPECIFIED [Concomitant]
     Dosage: 100 MILLIGRAM DAILY; THERAPY START AND END DATE: ASKU
  5. AMLODIPINE TABLET   5MG / BRAND NAME NOT SPECIFIED [Concomitant]
     Active Substance: AMLODIPINE BESYLATE
     Dosage: 5 MILLIGRAM DAILY; THERAPY START AND END DATE: ASKU
  6. PREDNISOLON TABLET  5MG / BRAND NAME NOT SPECIFIED [Concomitant]
     Active Substance: PREDNISOLONE
     Dosage: THERAPY START AND END DATE: ASKU
  7. LEFLUNOMIDE TABLET  20MG / BRAND NAME NOT SPECIFIED [Suspect]
     Active Substance: LEFLUNOMIDE
     Indication: RHEUMATOID ARTHRITIS
     Dosage: 20 MILLIGRAM DAILY;
     Route: 065
     Dates: start: 201805, end: 20210222

REACTIONS (1)
  - Lung abscess [Recovered/Resolved]

NARRATIVE: CASE EVENT DATE: 20201116
